FAERS Safety Report 5046264-5 (Version None)
Quarter: 2006Q2

REPORT INFORMATION
  Report Type: 
  Country: None (occurrence: None)
  Receive Date: 20060601
  Receipt Date: 20060215
  Transmission Date: 20061013
  Serious: No
  Sender: FDA-Public Use
  Company Number: 2006PV008711

PATIENT
  Age: 63 Year
  Sex: Female
  Weight: 53.0709 kg

DRUGS (5)
  1. BYETTA [Suspect]
     Indication: DIABETES MELLITUS NON-INSULIN-DEPENDENT
     Dosage: SEE IMAGE
     Route: 058
     Dates: start: 20060101, end: 20060101
  2. BYETTA [Suspect]
     Indication: DIABETES MELLITUS NON-INSULIN-DEPENDENT
     Dosage: SEE IMAGE
     Route: 058
     Dates: start: 20060101, end: 20060201
  3. METFORMIN [Concomitant]
  4. GLIPIZIDE [Concomitant]
  5. METOCLOPRAMIDE [Concomitant]

REACTIONS (5)
  - ABDOMINAL DISTENSION [None]
  - HEADACHE [None]
  - HYPOGLYCAEMIA [None]
  - NAUSEA [None]
  - VOMITING [None]
